FAERS Safety Report 6345304-0 (Version None)
Quarter: 2009Q3

REPORT INFORMATION
  Report Type: 
  Country: None (occurrence: None)
  Receive Date: 20090909
  Receipt Date: 20090831
  Transmission Date: 20100115
  Serious: Yes (Other)
  Sender: FDA-Public Use
  Company Number: DE-ASTRAZENECA-2009SE10450

PATIENT
  Sex: Female
  Weight: 60 kg

DRUGS (5)
  1. CRESTOR [Suspect]
     Indication: HYPERCHOLESTEROLAEMIA
     Route: 048
     Dates: start: 20090501, end: 20090601
  2. PRAVASTATIN [Suspect]
     Indication: HYPERCHOLESTEROLAEMIA
     Route: 048
     Dates: start: 20071101, end: 20080501
  3. INEGY [Suspect]
     Indication: HYPERCHOLESTEROLAEMIA
     Dosage: 10MG/40MG
     Route: 048
     Dates: start: 20070501, end: 20070701
  4. SORTIS [Suspect]
     Indication: HYPERCHOLESTEROLAEMIA
     Route: 048
     Dates: start: 20070301
  5. NIASPAN [Suspect]
     Route: 048

REACTIONS (3)
  - FLUSHING [None]
  - MYOPATHY [None]
  - PRURITUS GENERALISED [None]
